FAERS Safety Report 7218783-4 (Version None)
Quarter: 2011Q1

REPORT INFORMATION
  Report Type: 
  Country: None (occurrence: None)
  Receive Date: 20110110
  Receipt Date: 20100709
  Transmission Date: 20110831
  Serious: No
  Sender: FDA-Public Use
  Company Number: US-ABBOTT-10P-163-0657061-00

PATIENT
  Age: 65 Year
  Sex: Male
  Weight: 77.18 kg

DRUGS (6)
  1. NEURONTIN [Concomitant]
     Indication: PRODUCT USED FOR UNKNOWN INDICATION
  2. VICODIN [Suspect]
     Indication: HEADACHE
     Dosage: 4-5/500MG TABLETS EVERY 12 HOURS
     Route: 048
     Dates: start: 20070301
  3. RESTORIL [Concomitant]
     Indication: PRODUCT USED FOR UNKNOWN INDICATION
  4. STELAZINE [Concomitant]
     Indication: PRODUCT USED FOR UNKNOWN INDICATION
  5. XANAX [Concomitant]
     Indication: PRODUCT USED FOR UNKNOWN INDICATION
  6. VICODIN [Suspect]
     Indication: SENSORY DISTURBANCE

REACTIONS (1)
  - SENSORY DISTURBANCE [None]
